FAERS Safety Report 5878689-X (Version None)
Quarter: 2008Q3

REPORT INFORMATION
  Report Type: 
  Country: None (occurrence: None)
  Receive Date: 20080910
  Receipt Date: 20080910
  Transmission Date: 20090109
  Serious: Yes (Life-Threatening)
  Sender: FDA-Public Use
  Company Number: None

PATIENT
  Age: 49 Year
  Sex: Male
  Weight: 70.3075 kg

DRUGS (1)
  1. VYTORIN [Suspect]
     Indication: TYPE IIA HYPERLIPIDAEMIA
     Dosage: 10/40MG EVERY EVENING PO
     Route: 048
     Dates: start: 20070501, end: 20080710

REACTIONS (5)
  - AMNESIA [None]
  - CEREBRAL ARTERIOSCLEROSIS [None]
  - CEREBROVASCULAR ACCIDENT [None]
  - FAT EMBOLISM [None]
  - HYDROCEPHALUS [None]
